FAERS Safety Report 25608979 (Version 2)
Quarter: 2025Q3

REPORT INFORMATION
  Report Type: Spontaneous
  Country: EU (occurrence: EU)
  Receive Date: 20250726
  Receipt Date: 20250806
  Transmission Date: 20251020
  Serious: Yes (Other)
  Sender: AZURITY PHARMACEUTICALS
  Company Number: EU-AZURITY PHARMACEUTICALS, INC.-AZR202507-002314

PATIENT
  Age: 62 Year
  Sex: Male

DRUGS (6)
  1. TRIPTORELIN [Suspect]
     Active Substance: TRIPTORELIN
     Indication: Prostate cancer
     Route: 065
     Dates: start: 202209, end: 202308
  2. BICALUTAMIDE [Suspect]
     Active Substance: BICALUTAMIDE
     Indication: Prostate cancer
     Route: 065
     Dates: start: 202209
  3. ENZALUTAMIDE [Suspect]
     Active Substance: ENZALUTAMIDE
     Indication: Prostate cancer
     Route: 065
     Dates: start: 202209
  4. Early Docetaxel [Concomitant]
     Indication: Prostate cancer
     Route: 065
     Dates: start: 202308
  5. Abiraterone/ prednisolone [Concomitant]
     Indication: Prostate cancer
     Route: 065
     Dates: start: 202401
  6. Abiraterone/ prednisolone plus Lynparza [Concomitant]
     Indication: Prostate cancer
     Route: 065
     Dates: start: 202505

REACTIONS (1)
  - Prostate cancer [Unknown]

NARRATIVE: CASE EVENT DATE: 20230701
